FAERS Safety Report 14419199 (Version 3)
Quarter: 2018Q1

REPORT INFORMATION
  Report Type: Spontaneous
  Country: JP (occurrence: JP)
  Receive Date: 20180122
  Receipt Date: 20180206
  Transmission Date: 20180509
  Serious: Yes (Other)
  Sender: FDA-Public Use
  Company Number: JP-PFIZER INC-2018022925

PATIENT
  Age: 79 Year
  Sex: Female
  Weight: 52.4 kg

DRUGS (12)
  1. DEXTROMETHORPHAN HYDROBROMIDE. [Concomitant]
     Active Substance: DEXTROMETHORPHAN HYDROBROMIDE
     Dosage: 45 MG, 1X/DAY
     Route: 048
  2. IBUDILAST [Concomitant]
     Active Substance: IBUDILAST
     Dosage: 10 MG, 1X/DAY
     Route: 048
  3. KAKKONTO [Concomitant]
     Active Substance: HERBALS
     Indication: MUSCULOSKELETAL STIFFNESS
     Dosage: 15 G, 1X/DAY
     Route: 048
  4. LIMAPROST ALFADEX [Concomitant]
     Active Substance: LIMAPROST
     Dosage: 15 UG, 1X/DAY
     Route: 048
  5. POTASSIUM GLUCONATE [Concomitant]
     Active Substance: POTASSIUM GLUCONATE
     Dosage: 3 G, 1X/DAY
     Route: 048
  6. PROPAFENONE HYDROCHLORIDE. [Concomitant]
     Active Substance: PROPAFENONE HYDROCHLORIDE
     Indication: TACHYCARDIA PAROXYSMAL
     Dosage: 300 MG, 1X/DAY
     Route: 048
  7. ATORVASTATIN CALCIUM. [Suspect]
     Active Substance: ATORVASTATIN CALCIUM
     Dosage: 5 MG, 1X/DAY
     Route: 048
  8. FAMOTIDINE. [Concomitant]
     Active Substance: FAMOTIDINE
     Indication: ABDOMINAL DISCOMFORT
  9. KAKKONTO [Concomitant]
     Active Substance: HERBALS
     Indication: ABDOMINAL DISCOMFORT
  10. LEVOTHYROXINE SODIUM. [Concomitant]
     Active Substance: LEVOTHYROXINE SODIUM
     Dosage: 50 UG, 1X/DAY
     Route: 048
  11. FAMOTIDINE. [Concomitant]
     Active Substance: FAMOTIDINE
     Indication: MUSCULOSKELETAL STIFFNESS
     Dosage: 20 MG, 1X/DAY
     Route: 048
  12. SUVOREXANT. [Concomitant]
     Active Substance: SUVOREXANT
     Dosage: 20 MG, 1X/DAY
     Route: 048

REACTIONS (3)
  - Interstitial lung disease [Unknown]
  - Hypomagnesaemia [Unknown]
  - Autoimmune thyroiditis [Unknown]
